FAERS Safety Report 9672414 (Version 1)
Quarter: 2013Q4

REPORT INFORMATION
  Report Type: Spontaneous
  Country: CA (occurrence: None)
  Receive Date: 20131105
  Receipt Date: 20131105
  Transmission Date: 20140711
  Serious: Yes (Other)
  Sender: FDA-Public Use
  Company Number: CA-013473

PATIENT
  Age: 89 Year
  Sex: Male

DRUGS (12)
  1. FIRMAGON [Suspect]
     Indication: PROSTATE CANCER
     Route: 058
     Dates: start: 20121201
  2. TRIAMZIDE [Concomitant]
  3. ACCUPRIL [Concomitant]
  4. AMLODIPINE [Concomitant]
  5. COTAZYM/0001401/ [Concomitant]
  6. ASA [Concomitant]
  7. GONADOTROPIN RELEASING HORMONE ANALOGUES [Concomitant]
  8. SALBUTAMOL [Concomitant]
  9. BUSCOPAN [Concomitant]
  10. FOLIC ACID [Concomitant]
  11. VITAMIN D3 [Concomitant]
  12. B12 VITAMIN STAR [Concomitant]

REACTIONS (3)
  - Fall [None]
  - Intervertebral disc injury [None]
  - Rib fracture [None]
